FAERS Safety Report 8976686 (Version 2)
Quarter: 2013Q1

REPORT INFORMATION
  Report Type: Other
  Country: JP (occurrence: JP)
  Receive Date: 20121220
  Receipt Date: 20130123
  Transmission Date: 20140127
  Serious: Yes (Other)
  Sender: FDA-Public Use
  Company Number: JP-BRISTOL-MYERS SQUIBB COMPANY-17223496

PATIENT
  Age: 80 Year
  Sex: Female

DRUGS (2)
  1. ABILIFY [Suspect]
     Indication: DEMENTIA
     Route: 048
  2. QUETIAPINE FUMARATE [Concomitant]

REACTIONS (4)
  - Fall [Unknown]
  - Radius fracture [Unknown]
  - Glaucoma [Unknown]
  - Lymphoedema [Unknown]
